FAERS Safety Report 8546141-9 (Version None)
Quarter: 2012Q3

REPORT INFORMATION
  Report Type: 
  Country: None (occurrence: None)
  Receive Date: 20120727
  Receipt Date: 20120723
  Transmission Date: 20120928
  Serious: Yes (Hospitalization)
  Sender: FDA-Public Use
  Company Number: CA-AMGEN-CANSP2012045825

PATIENT
  Age: 43 Year
  Sex: Female

DRUGS (8)
  1. LABETALOL HCL [Concomitant]
  2. ARANESP [Suspect]
     Indication: RENAL FAILURE CHRONIC
     Dosage: 150 MUG, QWK
     Dates: start: 20120627, end: 20120714
  3. FUROSEMIDE [Concomitant]
  4. IRBESARTAN [Concomitant]
  5. PREDNISONE [Concomitant]
  6. ARANESP [Suspect]
  7. PLAQUENIL [Concomitant]
  8. AZATHIOPRINE [Concomitant]

REACTIONS (1)
  - APLASIA PURE RED CELL [None]
